FAERS Safety Report 7582471-5 (Version None)
Quarter: 2011Q2

REPORT INFORMATION
  Report Type: 
  Country: None (occurrence: None)
  Receive Date: 20110630
  Receipt Date: 20110617
  Transmission Date: 20111010
  Serious: Yes (Other)
  Sender: FDA-Public Use
  Company Number: GR-JNJFOC-20110608873

PATIENT
  Age: 36 Year
  Sex: Female

DRUGS (1)
  1. REMICADE [Suspect]
     Indication: ANKYLOSING SPONDYLITIS
     Dosage: PATIENT HAD 9-10 INFUSIONS  START DATE: A YEAR AGO
     Route: 042
     Dates: start: 20100101

REACTIONS (4)
  - RASH [None]
  - PYREXIA [None]
  - MONONEURITIS [None]
  - OROPHARYNGEAL PAIN [None]
